FAERS Safety Report 5959017-8 (Version None)
Quarter: 2008Q4

REPORT INFORMATION
  Report Type: 
  Country: None (occurrence: None)
  Receive Date: 20081117
  Receipt Date: 20071025
  Transmission Date: 20090506
  Serious: Yes (Hospitalization, Other)
  Sender: FDA-Public Use
  Company Number: 071004-0001053

PATIENT
  Age: 1 Year
  Sex: Female

DRUGS (2)
  1. NEMBUTAL [Suspect]
     Indication: SEDATION
     Dosage: IV
     Route: 042
     Dates: start: 20070926, end: 20070926
  2. VERSED [Suspect]
     Indication: SEDATION
     Dosage: IV
     Route: 042
     Dates: start: 20070926, end: 20070926

REACTIONS (1)
  - BRADYCARDIA [None]
